FAERS Safety Report 4830311-7 (Version None)
Quarter: 2005Q4

REPORT INFORMATION
  Report Type: 
  Country: None (occurrence: None)
  Receive Date: 20051114
  Receipt Date: 20051028
  Transmission Date: 20060501
  Serious: Yes (Hospitalization, Other)
  Sender: FDA-Public Use
  Company Number: USA0510112235

PATIENT
  Age: 78 Year
  Sex: Male

DRUGS (1)
  1. FORTEO [Suspect]
     Indication: OSTEOPOROSIS

REACTIONS (9)
  - ADVERSE EVENT [None]
  - CHEST PAIN [None]
  - HEPATIC INFECTION [None]
  - LIVER DISORDER [None]
  - PHARMACEUTICAL PRODUCT COMPLAINT [None]
  - PNEUMONIA [None]
  - SCAB [None]
  - SKIN EXFOLIATION [None]
  - SKIN HAEMORRHAGE [None]
